FAERS Safety Report 25742766 (Version 2)
Quarter: 2025Q3

REPORT INFORMATION
  Report Type: Spontaneous
  Country: EU (occurrence: EU)
  Receive Date: 20250830
  Receipt Date: 20250912
  Transmission Date: 20251021
  Serious: Yes (Other)
  Sender: ROCHE
  Company Number: EU-002147023-NVSC2025AT132851

PATIENT
  Sex: Female

DRUGS (5)
  1. XOLAIR [Suspect]
     Active Substance: OMALIZUMAB
     Indication: Chronic spontaneous urticaria
     Dosage: UNK, QMO?END DATE 15-MAY-2025
     Route: 065
     Dates: start: 20240903
  2. XOLAIR [Suspect]
     Active Substance: OMALIZUMAB
     Dosage: UNK, Q2W (2X150 MG/300 MG)?END DATE 15-MAY-2025
     Route: 058
     Dates: start: 20250306
  3. XOLAIR [Suspect]
     Active Substance: OMALIZUMAB
     Dosage: UNK, Q4W (2X150 MG/300 MG)?END DATE 15-MAY-2025
     Route: 058
     Dates: start: 20240903
  4. XOLAIR [Suspect]
     Active Substance: OMALIZUMAB
     Dosage: UNK, Q4W (2X150 MG/300 MG)?END DATE 15-MAY-2025
     Route: 058
     Dates: start: 20240903
  5. CYCLOSPORINE [Suspect]
     Active Substance: CYCLOSPORINE
     Indication: Chronic spontaneous urticaria
     Dosage: UNK, BID (1-0-1) (TABLET)
     Route: 065
     Dates: start: 20250515, end: 20250820

REACTIONS (4)
  - Angioedema [Unknown]
  - Disease recurrence [Unknown]
  - Therapeutic product effect incomplete [Unknown]
  - Condition aggravated [Not Recovered/Not Resolved]
